FAERS Safety Report 4685334-8 (Version None)
Quarter: 2005Q2

REPORT INFORMATION
  Report Type: 
  Country: None (occurrence: None)
  Receive Date: 20050608
  Receipt Date: 20050530
  Transmission Date: 20051028
  Serious: Yes (Life-Threatening)
  Sender: FDA-Public Use
  Company Number: IT-ROCHE-406186

PATIENT
  Age: 3 Year
  Sex: Female

DRUGS (2)
  1. ROCEPHIN [Suspect]
     Indication: BRONCHITIS
     Route: 030
     Dates: start: 20050525, end: 20050525
  2. BENTELAN [Concomitant]
     Indication: BRONCHITIS
     Route: 030
     Dates: start: 20050525, end: 20050525

REACTIONS (2)
  - GENERALISED ERYTHEMA [None]
  - VOMITING [None]
